FAERS Safety Report 8576813-1 (Version None)
Quarter: 2012Q3

REPORT INFORMATION
  Report Type: 
  Country: None (occurrence: None)
  Receive Date: 20120807
  Receipt Date: 20120803
  Transmission Date: 20120928
  Serious: Yes (Hospitalization)
  Sender: FDA-Public Use
  Company Number: US-AMGEN-US241538

PATIENT
  Age: 33 Year
  Sex: Male

DRUGS (3)
  1. CINACALCET HYDROCHLORIDE [Suspect]
     Indication: HYPERPARATHYROIDISM SECONDARY
     Dosage: UNK UNK, QD
     Route: 048
     Dates: start: 20070730
  2. HYDROMORPHINE HYDROCHLORIDE [Concomitant]
     Dosage: UNK UNK, UNK
     Route: 065
  3. OXYCODONE HCL [Concomitant]
     Dosage: UNK UNK, UNK
     Route: 065

REACTIONS (2)
  - ABDOMINAL PAIN UPPER [None]
  - OESOPHAGITIS [None]
